FAERS Safety Report 9137292 (Version 1)
Quarter: 2013Q1

REPORT INFORMATION
  Report Type: Spontaneous
  Country: US (occurrence: US)
  Receive Date: 20130219
  Receipt Date: 20130219
  Transmission Date: 20140127
  Serious: No
  Sender: FDA-Public Use
  Company Number: US-BRISTOL-MYERS SQUIBB COMPANY-16495756

PATIENT
  Age: 69 Year
  Sex: Female
  Weight: 53.06 kg

DRUGS (1)
  1. ORENCIA [Suspect]
     Indication: RHEUMATOID ARTHRITIS
     Dosage: ONE INF AROUND 20MAR12 OR 23MAR12
     Route: 042
     Dates: start: 20120320

REACTIONS (3)
  - Pain in extremity [Unknown]
  - Malaise [Unknown]
  - Asthenia [Unknown]
